FAERS Safety Report 12599335 (Version 1)
Quarter: 2016Q3

REPORT INFORMATION
  Report Type: Spontaneous
  Country: JP (occurrence: JP)
  Receive Date: 20160727
  Receipt Date: 20160727
  Transmission Date: 20161109
  Serious: Yes (Other)
  Sender: FDA-Public Use
  Company Number: JP-ELI_LILLY_AND_COMPANY-JP201607009289

PATIENT
  Age: 75 Year
  Sex: Female

DRUGS (2)
  1. GEMZAR [Suspect]
     Active Substance: GEMCITABINE HYDROCHLORIDE
     Indication: PANCREATIC CARCINOMA STAGE IV
     Dosage: 1000 MG/M2, OTHER
     Route: 042
  2. PACLITAXEL ALBUMIN [Concomitant]
     Active Substance: PACLITAXEL
     Dosage: 100 MG/M2, OTHER
     Route: 042

REACTIONS (3)
  - Duodenitis haemorrhagic [Unknown]
  - Enteritis [Unknown]
  - Decreased appetite [Unknown]
